FAERS Safety Report 10461615 (Version 1)
Quarter: 2014Q3

REPORT INFORMATION
  Report Type: Spontaneous
  Country: US (occurrence: US)
  Receive Date: 20140918
  Receipt Date: 20140918
  Transmission Date: 20150326
  Serious: No
  Sender: FDA-Public Use
  Company Number: US-GE HEALTHCARE MEDICAL DIAGNOSTICS-INOX-PR-1307S-0002

PATIENT
  Age: 68 Year
  Sex: Female

DRUGS (2)
  1. INDIUM IN111 OXINE [Suspect]
     Active Substance: INDIUM
     Indication: ARTHRALGIA
     Route: 042
     Dates: start: 20130605, end: 20130605
  2. INDIUM IN111 OXINE [Suspect]
     Active Substance: INDIUM
     Indication: DIAGNOSTIC PROCEDURE

REACTIONS (2)
  - Injection site rash [Recovered/Resolved]
  - Pyrexia [Recovered/Resolved]

NARRATIVE: CASE EVENT DATE: 20130606
